FAERS Safety Report 12763438 (Version 1)
Quarter: 2016Q3

REPORT INFORMATION
  Report Type: Report from Study
  Country: CA (occurrence: CA)
  Receive Date: 20160920
  Receipt Date: 20160920
  Transmission Date: 20161109
  Serious: Yes (Hospitalization)
  Sender: FDA-Public Use
  Company Number: CA-BAYER-2016-098407

PATIENT
  Age: 64 Year
  Sex: Female

DRUGS (6)
  1. AMLODIPINE [Concomitant]
     Active Substance: AMLODIPINE BESYLATE
  2. VITAMIN D [Concomitant]
     Active Substance: CHOLECALCIFEROL
  3. NEXAVAR [Suspect]
     Active Substance: SORAFENIB
     Indication: HEPATOCELLULAR CARCINOMA
     Dosage: UNK
     Route: 048
     Dates: start: 20160516
  4. NADOLOL. [Concomitant]
     Active Substance: NADOLOL
  5. NEXAVAR [Suspect]
     Active Substance: SORAFENIB
     Indication: HEPATOCELLULAR CARCINOMA
     Dosage: 400 MG DAILY
     Route: 048
     Dates: end: 201605
  6. CALCIUM [Concomitant]
     Active Substance: CALCIUM

REACTIONS (10)
  - Contrast media allergy [Not Recovered/Not Resolved]
  - Ammonia increased [Recovering/Resolving]
  - Fatigue [Not Recovered/Not Resolved]
  - Hypertension [Unknown]
  - Toxicity to various agents [Not Recovered/Not Resolved]
  - Confusional state [Recovering/Resolving]
  - Underdose [None]
  - Syncope [Not Recovered/Not Resolved]
  - Ammonia abnormal [Not Recovered/Not Resolved]
  - Alopecia [Not Recovered/Not Resolved]

NARRATIVE: CASE EVENT DATE: 201605
